FAERS Safety Report 4366101-1 (Version None)
Quarter: 2004Q2

REPORT INFORMATION
  Report Type: 
  Country: None (occurrence: None)
  Receive Date: 20040524
  Receipt Date: 20040512
  Transmission Date: 20050107
  Serious: Yes (Hospitalization)
  Sender: FDA-Public Use
  Company Number: D01200401661

PATIENT
  Age: 72 Year
  Sex: Male
  Weight: 73 kg

DRUGS (15)
  1. CISPLATIN [Suspect]
     Indication: SMALL CELL LUNG CANCER EXTENSIVE STAGE
     Dosage: 80 MG/M2 CONT - INTRAVENOUS NOS
     Route: 042
     Dates: start: 20040406, end: 20040406
  2. ETOPOSIDE [Suspect]
     Indication: SMALL CELL LUNG CANCER EXTENSIVE STAGE
     Dosage: 120 MG/M2 GIVEN ON DAYS 1, 2 AND 3, IN A 30-MINUTE INFUSION - INTRAVENOUS NOS
     Route: 042
     Dates: start: 20040406, end: 20040406
  3. METOCLOPRAMIDE [Concomitant]
  4. DEXAMETHASONE [Concomitant]
  5. OMEPRAZOLE [Concomitant]
  6. METHYLPREDNISOLONE [Concomitant]
  7. TRAMADOL HYDROCHLORIDE [Concomitant]
  8. ALBUTEROL SULFATE [Concomitant]
  9. IPRATROPIUM BROMIDE [Concomitant]
  10. FUROSEMIDE [Concomitant]
  11. DIGOXIN [Concomitant]
  12. HEPARIN-FRACTION, SODIUM SALT [Concomitant]
  13. TROPISETRON HYDROCHLORIDE [Concomitant]
  14. CIPROFLOXACIN HYDROCHLORIDE [Concomitant]
  15. TROPISETRON HYDROCHLORIDE [Concomitant]

REACTIONS (3)
  - CHEST WALL PAIN [None]
  - HYPOCALCAEMIA [None]
  - NEUTROPENIA [None]
